FAERS Safety Report 18958621 (Version 1)
Quarter: 2021Q1

REPORT INFORMATION
  Report Type: Spontaneous
  Country: PA (occurrence: PA)
  Receive Date: 20210302
  Receipt Date: 20210302
  Transmission Date: 20210420
  Serious: Yes (Other)
  Sender: FDA-Public Use
  Company Number: PA-AMNEAL PHARMACEUTICALS-2021-AMRX-00562

PATIENT
  Age: 36 Year
  Sex: Female

DRUGS (2)
  1. ALBENZA [Suspect]
     Active Substance: ALBENDAZOLE
     Indication: PRODUCT USED FOR UNKNOWN INDICATION
     Dosage: TABLET
     Route: 065
  2. ALBENDAZOLE. [Suspect]
     Active Substance: ALBENDAZOLE
     Indication: HELMINTHIC INFECTION
     Dosage: UNK, 400MG/10ML
     Route: 048
     Dates: start: 20210131

REACTIONS (17)
  - Nausea [Unknown]
  - Pruritus [Unknown]
  - Vomiting [Unknown]
  - Feeling hot [Unknown]
  - Pyrexia [Recovered/Resolved]
  - Peripheral coldness [Unknown]
  - Chromaturia [Unknown]
  - Chills [Recovered/Resolved]
  - Gait disturbance [Unknown]
  - Discomfort [Recovered/Resolved]
  - Arthralgia [Recovered/Resolved]
  - Pain in extremity [Unknown]
  - Illness [Unknown]
  - Asthenia [Unknown]
  - Headache [Unknown]
  - Kidney infection [Unknown]
  - Neck pain [Unknown]

NARRATIVE: CASE EVENT DATE: 20210131
